FAERS Safety Report 20828219 (Version 1)
Quarter: 2022Q2

REPORT INFORMATION
  Report Type: Spontaneous
  Country: US (occurrence: US)
  Receive Date: 20220513
  Receipt Date: 20220513
  Transmission Date: 20220720
  Serious: No
  Sender: FDA-Public Use
  Company Number: US-SA-SAC20220509000405

PATIENT
  Age: 44 Year
  Sex: Female

DRUGS (17)
  1. CEREZYME [Suspect]
     Active Substance: IMIGLUCERASE
     Indication: Gaucher^s disease
     Dosage: 5000 IU, QOW
     Route: 042
     Dates: start: 20050412
  2. CEREZYME [Suspect]
     Active Substance: IMIGLUCERASE
     Indication: Lipidosis
  3. HEPARIN [Concomitant]
     Active Substance: HEPARIN SODIUM
  4. SODIUM CHLORIDE [Concomitant]
     Active Substance: SODIUM CHLORIDE
  5. EPINEPHRINE [Concomitant]
     Active Substance: EPINEPHRINE
  6. METHADONE [Concomitant]
     Active Substance: METHADONE HYDROCHLORIDE
  7. ZOLPIDEM [Concomitant]
     Active Substance: ZOLPIDEM TARTRATE
  8. ATORVASTATIN [Concomitant]
     Active Substance: ATORVASTATIN
  9. METFORMIN [Concomitant]
     Active Substance: METFORMIN HYDROCHLORIDE
  10. ASPIRIN [Concomitant]
     Active Substance: ASPIRIN
  11. VITAMIN B [Concomitant]
     Active Substance: VITAMIN B
  12. VITAMIN D3 [Concomitant]
     Active Substance: CHOLECALCIFEROL
  13. LISINOPRIL [Concomitant]
     Active Substance: LISINOPRIL
  14. NUCYNTA [Concomitant]
     Active Substance: TAPENTADOL HYDROCHLORIDE
  15. VITAMIN C [Concomitant]
     Active Substance: ASCORBIC ACID
  16. TRAZODONE [Concomitant]
     Active Substance: TRAZODONE HYDROCHLORIDE
  17. VITAMINS NOS [Concomitant]
     Active Substance: VITAMINS

REACTIONS (1)
  - Inappropriate schedule of product administration [Unknown]
